FAERS Safety Report 15395897 (Version 3)
Quarter: 2018Q3

REPORT INFORMATION
  Report Type: Spontaneous
  Country: US (occurrence: US)
  Receive Date: 20180918
  Receipt Date: 20180921
  Transmission Date: 20181010
  Serious: Yes (Hospitalization)
  Sender: FDA-Public Use
  Company Number: US-FRESENIUS MEDICAL CARE RENAL THERAPIES GROUP-FMC-1809-001685

PATIENT
  Sex: Male

DRUGS (6)
  1. BUDESONIDE FORMOTEROL [Concomitant]
     Active Substance: BUDESONIDE
  2. CARVEDILOL. [Concomitant]
     Active Substance: CARVEDILOL
  3. INSULIN ASPART [Concomitant]
     Active Substance: INSULIN ASPART
  4. LEVEMIR [Concomitant]
     Active Substance: INSULIN DETEMIR
  5. DELFLEX [Suspect]
     Active Substance: CALCIUM CHLORIDE\DEXTROSE\MAGNESIUM CHLORIDE\SODIUM CHLORIDE\SODIUM LACTATE
     Indication: END STAGE RENAL DISEASE
     Route: 033
  6. AMLODIPINE [Concomitant]
     Active Substance: AMLODIPINE BESYLATE

REACTIONS (4)
  - Treatment noncompliance [Recovering/Resolving]
  - Fluid overload [Recovering/Resolving]
  - Hypoglycaemia [Recovered/Resolved]
  - Cardiac failure acute [Recovering/Resolving]
